FAERS Safety Report 7798574-6 (Version None)
Quarter: 2011Q4

REPORT INFORMATION
  Report Type: 
  Country: None (occurrence: None)
  Receive Date: 20111005
  Receipt Date: 20110930
  Transmission Date: 20120403
  Serious: Yes (Disabling)
  Sender: FDA-Public Use
  Company Number: US-MERCK-1110USA00136

PATIENT
  Age: 48 Year
  Sex: Male

DRUGS (3)
  1. GLIMEPIRIDE [Concomitant]
     Route: 065
  2. JANUVIA [Suspect]
     Indication: DIABETES MELLITUS
     Route: 048
     Dates: end: 20100101
  3. METFORMIN [Concomitant]
     Route: 065

REACTIONS (3)
  - ABDOMINAL DISTENSION [None]
  - WRONG TECHNIQUE IN DRUG USAGE PROCESS [None]
  - ABDOMINAL PAIN UPPER [None]
